FAERS Safety Report 19866319 (Version 2)
Quarter: 2021Q4

REPORT INFORMATION
  Report Type: Report from Study
  Country: None (occurrence: US)
  Receive Date: 20210921
  Receipt Date: 20211022
  Transmission Date: 20220303
  Serious: Yes (Hospitalization)
  Sender: FDA-Public Use
  Company Number: US-ABBVIE-21P-163-4086839-00

PATIENT
  Age: 77 Year
  Sex: Female

DRUGS (10)
  1. VENETOCLAX [Suspect]
     Active Substance: VENETOCLAX
     Indication: Acute myeloid leukaemia
     Dosage: DAY 1
     Route: 048
     Dates: start: 20210811
  2. VENETOCLAX [Suspect]
     Active Substance: VENETOCLAX
     Dosage: DAY 2
     Route: 048
     Dates: start: 20210812
  3. VENETOCLAX [Suspect]
     Active Substance: VENETOCLAX
     Dosage: DAYS 3-34
     Route: 048
     Dates: start: 20210813, end: 20210913
  4. AZACITIDINE [Concomitant]
     Active Substance: AZACITIDINE
     Indication: Acute myeloid leukaemia
     Dosage: DAYS 1-7
     Route: 065
     Dates: start: 20210811, end: 20210817
  5. MAGROLIMAB [Concomitant]
     Active Substance: MAGROLIMAB
     Indication: Acute myeloid leukaemia
     Dosage: DAY 1
     Route: 042
     Dates: start: 20210811
  6. MAGROLIMAB [Concomitant]
     Active Substance: MAGROLIMAB
     Dosage: DAY 4
     Route: 042
     Dates: start: 20210814
  7. MAGROLIMAB [Concomitant]
     Active Substance: MAGROLIMAB
     Dosage: DAY 8
     Route: 042
     Dates: start: 20210818
  8. MAGROLIMAB [Concomitant]
     Active Substance: MAGROLIMAB
     Dosage: DAY 11
     Route: 042
     Dates: start: 20210821
  9. MAGROLIMAB [Concomitant]
     Active Substance: MAGROLIMAB
     Dosage: DAY 15
     Route: 042
     Dates: start: 20210825
  10. MAGROLIMAB [Concomitant]
     Active Substance: MAGROLIMAB
     Dosage: DAY 22
     Route: 042
     Dates: start: 20210901

REACTIONS (1)
  - Peritonsillar abscess [Recovered/Resolved]

NARRATIVE: CASE EVENT DATE: 20210911
